FAERS Safety Report 5626580-6 (Version None)
Quarter: 2008Q1

REPORT INFORMATION
  Report Type: 
  Country: None (occurrence: None)
  Receive Date: 20080214
  Receipt Date: 20080131
  Transmission Date: 20080703
  Serious: Yes (Death)
  Sender: FDA-Public Use
  Company Number: JP-SANOFI-SYNTHELABO-A01200800553

PATIENT
  Sex: Male
  Weight: 55 kg

DRUGS (10)
  1. PLAVIX [Suspect]
     Indication: CAROTID ARTERY STENOSIS
     Route: 048
     Dates: start: 20071203, end: 20080109
  2. PLAVIX [Suspect]
     Indication: CEREBRAL INFARCTION
     Route: 048
     Dates: start: 20071203, end: 20080109
  3. GLUFAST [Concomitant]
     Indication: DIABETES MELLITUS
     Route: 048
     Dates: start: 20071203, end: 20080109
  4. BASEN OD [Concomitant]
     Indication: DIABETES MELLITUS
     Route: 048
     Dates: start: 20071130, end: 20080109
  5. PREDNISOLONE [Concomitant]
     Indication: ADRENAL INSUFFICIENCY
     Route: 048
     Dates: start: 20051118, end: 20080109
  6. SELBEX [Concomitant]
     Indication: GASTRITIS
     Route: 048
     Dates: start: 20050820, end: 20080109
  7. MUCOSOLVAN [Concomitant]
     Indication: BRONCHITIS CHRONIC
     Route: 048
     Dates: start: 20060202, end: 20080109
  8. CEROCRAL [Concomitant]
     Indication: DIZZINESS
     Route: 048
     Dates: start: 20050820, end: 20080109
  9. MERISLON [Concomitant]
     Indication: DIZZINESS
     Route: 048
     Dates: start: 20050820, end: 20080109
  10. MAGLAX [Concomitant]
     Indication: CONSTIPATION
     Route: 048
     Dates: start: 20051116, end: 20080109

REACTIONS (2)
  - AGRANULOCYTOSIS [None]
  - HEPATOCELLULAR INJURY [None]
